FAERS Safety Report 8621821-5 (Version None)
Quarter: 2012Q3

REPORT INFORMATION
  Report Type: 
  Country: None (occurrence: None)
  Receive Date: 20120821
  Receipt Date: 20120821
  Transmission Date: 20120928
  Serious: Yes (Other)
  Sender: FDA-Public Use
  Company Number: None

PATIENT
  Age: 19 Year
  Sex: Female
  Weight: 52.1637 kg

DRUGS (1)
  1. WELLBUTRIN [Suspect]
     Indication: CONVULSION
     Dosage: 300 MG ONCE A DAILY PO
     Route: 048

REACTIONS (3)
  - FALL [None]
  - CONCUSSION [None]
  - GRAND MAL CONVULSION [None]
